FAERS Safety Report 5851950-0 (Version None)
Quarter: 2008Q3

REPORT INFORMATION
  Report Type: 
  Country: None (occurrence: None)
  Receive Date: 20080819
  Receipt Date: 20080807
  Transmission Date: 20090109
  Serious: Yes (Other)
  Sender: FDA-Public Use
  Company Number: 2008S1012502

PATIENT
  Age: 49 Year
  Sex: Female

DRUGS (2)
  1. PHENYTOIN SODIUM [Suspect]
     Indication: CONVULSION
     Dosage: 200 MG; TWICE A DAY; ORAL
     Route: 048
     Dates: start: 20080109
  2. KEPPRA [Concomitant]

REACTIONS (4)
  - ANTICONVULSANT DRUG LEVEL DECREASED [None]
  - CONVULSION [None]
  - DRUG INEFFECTIVE [None]
  - THERAPEUTIC RESPONSE UNEXPECTED WITH DRUG SUBSTITUTION [None]
